FAERS Safety Report 4772487-6 (Version None)
Quarter: 2005Q3

REPORT INFORMATION
  Report Type: 
  Country: None (occurrence: None)
  Receive Date: 20050916
  Receipt Date: 20050916
  Transmission Date: 20060218
  Serious: Yes (Death)
  Sender: FDA-Public Use
  Company Number: None

PATIENT
  Age: 49 Year
  Sex: Male
  Weight: 75.2971 kg

DRUGS (3)
  1. VELCADE [Suspect]
     Indication: LIVER DISORDER
     Dosage: INTRAVENOUS
     Route: 042
     Dates: start: 20050323, end: 20050713
  2. OXALIPLATIN 252.2 [Suspect]
     Indication: LIVER DISORDER
     Dosage: INTRAVENOUS
     Route: 042
  3. CAPECITABINE [Suspect]

REACTIONS (2)
  - COLORECTAL CANCER [None]
  - MALIGNANT NEOPLASM PROGRESSION [None]
